FAERS Safety Report 9777527 (Version 1)
Quarter: 2013Q4

REPORT INFORMATION
  Report Type: Spontaneous
  Country: IT (occurrence: IT)
  Receive Date: 20131222
  Receipt Date: 20131222
  Transmission Date: 20140711
  Serious: Yes (Hospitalization)
  Sender: FDA-Public Use
  Company Number: PHHY2013IT150086

PATIENT
  Age: 62 Year
  Sex: Female

DRUGS (13)
  1. TEGRETOL [Suspect]
     Indication: EPILEPSY
     Dosage: 1200 MG, PER DAY
     Route: 048
     Dates: start: 20110101, end: 20131207
  2. DOMPERIDONE [Concomitant]
     Dosage: UNK UKN, UNK
  3. FLUTICASONE [Concomitant]
     Dosage: UNK UKN, UNK
  4. SIMVASTATIN [Concomitant]
     Dosage: UNK UKN, UNK
  5. PANTOPRAZOLE [Concomitant]
     Dosage: UNK UKN, UNK
  6. MACROGOL W/POTASSIUM CHLORIDE/SODIUM BICARBON [Concomitant]
     Dosage: UNK UKN, UNK
  7. LEVOSULPIRIDE [Concomitant]
     Dosage: UNK UKN, UNK
  8. FUROSEMIDE [Concomitant]
     Dosage: UNK UKN, UNK
  9. POTASSIUM CANRENOATE [Concomitant]
     Dosage: UNK UKN, UNK
  10. CALCIUM CARBONATE [Concomitant]
     Dosage: UNK UKN, UNK
  11. URSODEOXYCHOLIC ACID [Concomitant]
     Dosage: UNK UKN, UNK
  12. SPIRIVA [Concomitant]
     Dosage: UNK UKN, UNK
  13. KCL RETARD ZYMA [Concomitant]
     Dosage: UNK UKN, UNK

REACTIONS (1)
  - Sopor [Recovered/Resolved]
